FAERS Safety Report 6262865-0 (Version None)
Quarter: 2009Q3

REPORT INFORMATION
  Report Type: 
  Country: None (occurrence: None)
  Receive Date: 20090709
  Receipt Date: 20090703
  Transmission Date: 20100115
  Serious: Yes (Death, Hospitalization)
  Sender: FDA-Public Use
  Company Number: GB-AMGEN-US331027

PATIENT
  Sex: Female
  Weight: 110 kg

DRUGS (11)
  1. ENBREL [Suspect]
     Indication: RHEUMATOID ARTHRITIS
     Route: 058
     Dates: start: 20041201
  2. METHOTREXATE [Concomitant]
  3. PREDNISOLONE [Concomitant]
     Dosage: UNKNOWN
  4. ARCOXIA [Concomitant]
     Dosage: UNKNOWN
  5. METFORMIN HCL [Concomitant]
  6. FOLIC ACID [Concomitant]
  7. FUROSEMIDE [Concomitant]
     Dosage: UNKNOWN
  8. TYLEX [Concomitant]
     Dosage: 2 TABLETS AS NEEDED
  9. MELOXICAM [Concomitant]
     Dosage: 7.5 MG AS NEEDED
  10. SULFASALAZINE [Concomitant]
  11. ATORVASTATIN CALCIUM [Concomitant]

REACTIONS (3)
  - PNEUMONIA [None]
  - SMALL CELL LUNG CANCER STAGE UNSPECIFIED [None]
  - URINARY TRACT INFECTION [None]
